FAERS Safety Report 9380839 (Version 1)
Quarter: 2013Q3

REPORT INFORMATION
  Report Type: Spontaneous
  Country: GB (occurrence: GB)
  Receive Date: 20130702
  Receipt Date: 20130702
  Transmission Date: 20140515
  Serious: Yes (Life-Threatening, Hospitalization, Other)
  Sender: FDA-Public Use
  Company Number: GB-UCBSA-045522

PATIENT
  Age: 69 Year
  Sex: Female
  Weight: 78.6 kg

DRUGS (6)
  1. CIMZIA [Suspect]
     Indication: RHEUMATOID ARTHRITIS
     Route: 058
     Dates: start: 20110609, end: 20120307
  2. METHOTREXATE [Concomitant]
     Route: 048
     Dates: start: 1987
  3. PREDNISOLONE [Concomitant]
     Indication: RHEUMATOID ARTHRITIS
     Route: 048
  4. OMEPRAZOLE [Concomitant]
     Indication: DYSPEPSIA
     Route: 048
  5. HYDROXYCHLOROQUINE [Concomitant]
     Indication: RHEUMATOID ARTHRITIS
     Route: 048
  6. BENZTHIAZIDE [Concomitant]
     Indication: HYPERTENSION
     Route: 048

REACTIONS (4)
  - Convulsion [Recovered/Resolved]
  - Loss of consciousness [Recovered/Resolved]
  - Dyspnoea [Not Recovered/Not Resolved]
  - Oedema peripheral [Not Recovered/Not Resolved]
